FAERS Safety Report 9533220 (Version 2)
Quarter: 2013Q3

REPORT INFORMATION
  Report Type: Report from Study
  Country: US (occurrence: US)
  Receive Date: 20130918
  Receipt Date: 20130918
  Transmission Date: 20140515
  Serious: Yes (Other)
  Sender: FDA-Public Use
  Company Number: US-US-EMD SERONO, INC.-7234817

PATIENT
  Age: 37 Year
  Sex: Male

DRUGS (6)
  1. REBIF [Suspect]
     Indication: MULTIPLE SCLEROSIS
     Route: 058
  2. REBIF [Suspect]
     Route: 058
     Dates: start: 20120910
  3. IMMUNOGLOBULIN [Concomitant]
     Indication: MULTIPLE SCLEROSIS
     Route: 042
     Dates: start: 20130828
  4. AMITRIPTYLINE [Concomitant]
     Indication: DEPRESSION
  5. AMITRIPTYLINE [Concomitant]
     Indication: SLEEP DISORDER
  6. AMITRIPTYLINE [Concomitant]
     Indication: PAIN

REACTIONS (10)
  - Haematochezia [Unknown]
  - Suicidal ideation [Unknown]
  - Depression [Unknown]
  - Throat tightness [Not Recovered/Not Resolved]
  - Migraine [Not Recovered/Not Resolved]
  - Vein disorder [Unknown]
  - Diarrhoea [Not Recovered/Not Resolved]
  - Multiple sclerosis relapse [Not Recovered/Not Resolved]
  - Urticaria [Recovering/Resolving]
  - Influenza like illness [Not Recovered/Not Resolved]
